FAERS Safety Report 9206705 (Version 1)
Quarter: 2013Q1

REPORT INFORMATION
  Report Type: Spontaneous
  Country: US (occurrence: None)
  Receive Date: 20120709
  Receipt Date: 20120709
  Transmission Date: 20140127
  Serious: Yes (Hospitalization)
  Sender: FDA-Public Use
  Company Number: PHHY2011US46642

PATIENT
  Age: 82 Year
  Sex: Male

DRUGS (2)
  1. GLEEVEC (IMATINIB) [Suspect]
     Indication: CHRONIC MYELOID LEUKAEMIA
     Route: 048
     Dates: start: 20100923
  2. ANESTHETICS (NO INGREDIENTS/SUBSTANCES) [Concomitant]

REACTIONS (2)
  - Musculoskeletal pain [None]
  - Dyspnoea [None]
